FAERS Safety Report 7807761-X (Version None)
Quarter: 2011Q4

REPORT INFORMATION
  Report Type: 
  Country: None (occurrence: None)
  Receive Date: 20111011
  Receipt Date: 20111002
  Transmission Date: 20120403
  Serious: Yes (Other)
  Sender: FDA-Public Use
  Company Number: US-PURDUE-USA-2011-0075414

PATIENT
  Sex: Female
  Weight: 54.875 kg

DRUGS (2)
  1. MIRALAX [Suspect]
     Indication: CONSTIPATION
  2. SENOKOT [Suspect]
     Indication: CONSTIPATION
     Dosage: 2 TABLET, AM
     Dates: start: 20090101

REACTIONS (2)
  - CONSTIPATION [None]
  - STENT PLACEMENT [None]
